FAERS Safety Report 7999393-8 (Version None)
Quarter: 2011Q4

REPORT INFORMATION
  Report Type: 
  Country: None (occurrence: None)
  Receive Date: 20111221
  Receipt Date: 20111214
  Transmission Date: 20120403
  Serious: Yes (Hospitalization, Other)
  Sender: FDA-Public Use
  Company Number: US-ELI_LILLY_AND_COMPANY-US201112005202

PATIENT
  Sex: Male

DRUGS (5)
  1. HUMULIN R [Suspect]
     Indication: DIABETES MELLITUS
  2. HUMULIN N [Suspect]
     Indication: DIABETES MELLITUS
     Dosage: UNK, OTHER
  3. LANTUS [Concomitant]
     Dosage: UNK
  4. HUMALOG [Suspect]
     Dosage: UNK, OTHER
  5. HUMALOG [Suspect]
     Indication: DIABETES MELLITUS
     Dosage: UNK UNK, OTHER

REACTIONS (3)
  - LEG AMPUTATION [None]
  - ROAD TRAFFIC ACCIDENT [None]
  - HOSPITALISATION [None]
